FAERS Safety Report 4552457-3 (Version None)
Quarter: 2005Q1

REPORT INFORMATION
  Report Type: 
  Country: None (occurrence: None)
  Receive Date: 20050114
  Receipt Date: 20040504
  Transmission Date: 20050727
  Serious: Yes (Other)
  Sender: FDA-Public Use
  Company Number: US-BRISTOL-MYERS SQUIBB COMPANY-12578498

PATIENT
  Age: 44 Year
  Sex: Female

DRUGS (2)
  1. PLATINOL [Suspect]
     Indication: CERVIX CARCINOMA
     Dosage: INITIAL DOSE: 11-MAR-2004
     Route: 042
     Dates: start: 20040406, end: 20040406
  2. GEMCITABINE [Concomitant]

REACTIONS (1)
  - OTOTOXICITY [None]
